FAERS Safety Report 4388210-3 (Version None)
Quarter: 2004Q2

REPORT INFORMATION
  Report Type: 
  Country: None (occurrence: None)
  Receive Date: 20040629
  Receipt Date: 20040629
  Transmission Date: 20050107
  Serious: Yes (Other)
  Sender: FDA-Public Use
  Company Number: None

PATIENT
  Sex: Female
  Weight: 61.2356 kg

DRUGS (8)
  1. TIZANIDINE HCL [Suspect]
     Indication: PAIN
  2. AMBIEN [Concomitant]
  3. NEXIUM [Concomitant]
  4. XANAX [Concomitant]
  5. OXYCONTIN [Concomitant]
  6. TYLOX [Concomitant]
  7. ADVAIR DISKUS 100/50 [Concomitant]
  8. VALIIUM [Concomitant]

REACTIONS (3)
  - CONDITION AGGRAVATED [None]
  - PHARMACEUTICAL PRODUCT COMPLAINT [None]
  - UNEVALUABLE EVENT [None]
